FAERS Safety Report 11454962 (Version 1)
Quarter: 2015Q3

REPORT INFORMATION
  Report Type: Spontaneous
  Country: US (occurrence: US)
  Receive Date: 20150831
  Receipt Date: 20150831
  Transmission Date: 20151125
  Serious: No
  Sender: FDA-Public Use
  Company Number: US-ELI_LILLY_AND_COMPANY-US201006000927

PATIENT
  Age: 30 Year
  Sex: Female
  Weight: 79.37 kg

DRUGS (3)
  1. CYMBALTA [Suspect]
     Active Substance: DULOXETINE HYDROCHLORIDE
     Dates: end: 20091202
  2. HUMIRA /USA/ [Concomitant]
     Dosage: UNK, UNKNOWN
  3. HUMIRA /USA/ [Concomitant]
     Indication: CROHN^S DISEASE
     Dosage: UNK, UNK
     Dates: start: 20090716

REACTIONS (5)
  - Diarrhoea [Not Recovered/Not Resolved]
  - Adverse event [Not Recovered/Not Resolved]
  - Drug withdrawal syndrome [Not Recovered/Not Resolved]
  - Muscle twitching [Not Recovered/Not Resolved]
  - Dizziness [Not Recovered/Not Resolved]

NARRATIVE: CASE EVENT DATE: 20091204
